FAERS Safety Report 18231048 (Version 1)
Quarter: 2020Q3

REPORT INFORMATION
  Report Type: Spontaneous
  Country: DE (occurrence: DE)
  Receive Date: 20200904
  Receipt Date: 20200904
  Transmission Date: 20201103
  Serious: Yes (Other)
  Sender: FDA-Public Use
  Company Number: DE-BAUSCH-BL-2020-025151

PATIENT
  Age: 68 Year
  Sex: Male

DRUGS (6)
  1. DEXAMETHASONE. [Suspect]
     Active Substance: DEXAMETHASONE
     Indication: PLASMA CELL MYELOMA
     Route: 065
     Dates: start: 202001
  2. DEXAMETHASONE. [Suspect]
     Active Substance: DEXAMETHASONE
     Dosage: DOSE INCREASED
     Route: 065
     Dates: start: 2020
  3. IXAZOMIB [Suspect]
     Active Substance: IXAZOMIB
     Indication: PLASMA CELL MYELOMA
     Route: 065
     Dates: start: 202001
  4. IXAZOMIB [Suspect]
     Active Substance: IXAZOMIB
     Dosage: DOSE INCREASED
     Route: 065
     Dates: start: 2020
  5. REVLIMID [Suspect]
     Active Substance: LENALIDOMIDE
     Indication: PLASMA CELL MYELOMA
     Route: 065
     Dates: start: 202001
  6. REVLIMID [Suspect]
     Active Substance: LENALIDOMIDE
     Dosage: DOSE INCREASED
     Route: 065
     Dates: start: 2020

REACTIONS (1)
  - Polyneuropathy [Unknown]
